FAERS Safety Report 22140577 (Version 1)
Quarter: 2023Q1

REPORT INFORMATION
  Report Type: Other
  Country: GB (occurrence: GB)
  Receive Date: 20230327
  Receipt Date: 20230327
  Transmission Date: 20230418
  Serious: Yes (Disabling, Other)
  Sender: FDA-Public Use
  Company Number: None

PATIENT
  Age: 35 Year
  Sex: Female
  Weight: 73 kg

DRUGS (2)
  1. PREDNISOLONE [Suspect]
     Active Substance: PREDNISOLONE
     Indication: Lichen planus
     Dosage: 10 MILLIGRAM, BID (TWICE A DAY) TABLET
     Route: 065
     Dates: start: 20230220
  2. SERTRALINE [Concomitant]
     Active Substance: SERTRALINE HYDROCHLORIDE
     Indication: Adverse drug reaction
     Dosage: UNK
     Route: 065
     Dates: start: 20130101

REACTIONS (6)
  - Medication error [Unknown]
  - Depression [None]
  - Hot flush [None]
  - Night sweats [None]
  - Irritability [None]
  - Head discomfort [None]

NARRATIVE: CASE EVENT DATE: 20230222
